FAERS Safety Report 10655064 (Version 2)
Quarter: 2014Q4

REPORT INFORMATION
  Report Type: Spontaneous
  Country: US (occurrence: US)
  Receive Date: 20141216
  Receipt Date: 20141216
  Transmission Date: 20150529
  Serious: Yes (Disabling)
  Sender: FDA-Public Use
  Company Number: US-CELGENEUS-163-20785-05090374

PATIENT
  Sex: Female
  Weight: 70.3 kg

DRUGS (1)
  1. THALOMID [Suspect]
     Active Substance: THALIDOMIDE
     Indication: PLASMA CELL MYELOMA
     Dosage: 200 MILLIGRAM
     Route: 048
     Dates: start: 200110, end: 200507

REACTIONS (2)
  - Amnesia [Recovered/Resolved with Sequelae]
  - Aphasia [Recovered/Resolved with Sequelae]
